FAERS Safety Report 24030463 (Version 1)
Quarter: 2024Q2

REPORT INFORMATION
  Report Type: Spontaneous
  Country: US (occurrence: US)
  Receive Date: 20240628
  Receipt Date: 20240628
  Transmission Date: 20240716
  Serious: No
  Sender: FDA-Public Use
  Company Number: US-NKFPHARMA-2023MPSPO00136

PATIENT

DRUGS (4)
  1. HEPARIN SODIUM [Suspect]
     Active Substance: HEPARIN SODIUM
     Indication: Carotid revascularisation
     Route: 065
     Dates: start: 20230829, end: 20230829
  2. HEPARIN SODIUM [Suspect]
     Active Substance: HEPARIN SODIUM
     Dosage: 10000 UNITS  AND 15000 UNITS
     Route: 065
     Dates: start: 20230829, end: 20230829
  3. HEPARIN SODIUM [Suspect]
     Active Substance: HEPARIN SODIUM
     Dosage: 10000 AND 15000 AND 2000 AND 5000 UNITS
     Route: 065
     Dates: start: 20230829, end: 20230829
  4. HEPARIN SODIUM [Suspect]
     Active Substance: HEPARIN SODIUM
     Dosage: 15000 AND 2000 UNITS
     Route: 065
     Dates: start: 20230829, end: 20230829

REACTIONS (2)
  - Therapeutic product effect incomplete [Unknown]
  - No adverse event [Unknown]

NARRATIVE: CASE EVENT DATE: 20230829
